FAERS Safety Report 4401437-7 (Version None)
Quarter: 2004Q3

REPORT INFORMATION
  Report Type: 
  Country: None (occurrence: None)
  Receive Date: 20040907
  Receipt Date: 20040505
  Transmission Date: 20050211
  Serious: No
  Sender: FDA-Public Use
  Company Number: US-BRISTOL-MYERS SQUIBB COMPANY-12579900

PATIENT
  Age: 51 Year
  Sex: Female
  Weight: 83 kg

DRUGS (4)
  1. COUMADIN [Suspect]
     Indication: DEEP VEIN THROMBOSIS
     Dosage: DOSAGE: VARYING DOSAGES, DEPENDANT ON MONTHLY BLOOD WORK
     Route: 048
  2. LIPITOR [Concomitant]
  3. LEXAPRO [Concomitant]
  4. ASACOL [Concomitant]

REACTIONS (1)
  - SKIN DISCOLOURATION [None]
